FAERS Safety Report 7564707-X (Version None)
Quarter: 2011Q2

REPORT INFORMATION
  Report Type: 
  Country: None (occurrence: None)
  Receive Date: 20110622
  Receipt Date: 20101018
  Transmission Date: 20111010
  Serious: Yes (Other)
  Sender: FDA-Public Use
  Company Number: US-MYLANLABS-2010S1017131

PATIENT
  Age: 46 Year
  Sex: Male

DRUGS (12)
  1. CLOZAPINE [Suspect]
     Indication: SCHIZOAFFECTIVE DISORDER
     Route: 048
     Dates: start: 20090225, end: 20100915
  2. VITAMIN D [Concomitant]
  3. MTV [Concomitant]
  4. DESMOPRESSIN [Concomitant]
     Dates: start: 20090226
  5. VALPROATE SODIUM [Concomitant]
     Dates: start: 20090226
  6. LORAZEPAM [Concomitant]
  7. CLOZAPINE [Suspect]
     Route: 048
     Dates: start: 20090225, end: 20100915
  8. OLANZAPINE [Suspect]
     Dates: start: 20090225
  9. QUETIAPINE [Suspect]
     Dates: start: 20090729
  10. LISINOPRIL [Concomitant]
     Dates: start: 20090418
  11. GABAPENTIN [Concomitant]
     Dates: start: 20090323
  12. VITAMIN E [Concomitant]
     Dosage: 1000 UNITS DAILY
     Dates: start: 20090323

REACTIONS (2)
  - GRANULOCYTOPENIA [None]
  - LEUKOPENIA [None]
